FAERS Safety Report 4370532-3 (Version None)
Quarter: 2004Q2

REPORT INFORMATION
  Report Type: 
  Country: None (occurrence: None)
  Receive Date: 20040528
  Receipt Date: 20040524
  Transmission Date: 20050107
  Serious: Yes (Other)
  Sender: FDA-Public Use
  Company Number: 2004215006US

PATIENT
  Sex: Female

DRUGS (1)
  1. BEXTRA [Suspect]
     Indication: KNEE ARTHROPLASTY
     Dosage: ORAL
     Route: 048

REACTIONS (1)
  - ERYTHEMA MULTIFORME [None]
